FAERS Safety Report 9741540 (Version 3)
Quarter: 2013Q4

REPORT INFORMATION
  Report Type: Report from Study
  Country: US (occurrence: US)
  Receive Date: 20131210
  Receipt Date: 20131212
  Transmission Date: 20140711
  Serious: Yes (Hospitalization, Disabling)
  Sender: FDA-Public Use
  Company Number: US-AMGEN-USACT2013084205

PATIENT
  Age: 69 Year
  Sex: Male
  Weight: 108.9 kg

DRUGS (26)
  1. DENOSUMAB [Suspect]
     Indication: PLASMA CELL MYELOMA
     Dosage: 120 MG, UNK
     Route: 065
     Dates: start: 20130509
  2. BORTEZOMIB [Concomitant]
     Dosage: UNK
     Dates: start: 20130418
  3. CALCITRIOL [Concomitant]
     Dosage: 0.5 MUG, QD
     Route: 048
  4. CALCITRIOL [Concomitant]
  5. ACYCLOVIR                          /00587301/ [Concomitant]
     Dosage: 400 MG, UNK
     Route: 048
     Dates: start: 20130425
  6. CARVEDILOL [Concomitant]
     Dosage: 6.25 MG, UNK
     Route: 048
  7. FERROUS SULFATE [Concomitant]
     Dosage: 1 UNK, UNK
     Route: 048
  8. FERROUS SULFATE [Concomitant]
  9. FUROSEMIDE [Concomitant]
     Dosage: 20-40 MG
     Dates: end: 20130524
  10. GEMFIBROZIL [Concomitant]
     Dosage: 600 MG, BID
     Route: 048
  11. LEVETIRACETAM [Concomitant]
     Dosage: 500 MG, UNK
     Route: 048
  12. LOSARTAN [Concomitant]
     Dosage: 50 MG, QD
     Route: 048
  13. OXYCODONE [Concomitant]
     Dosage: 1 UNK, UNK
     Route: 048
  14. PHENYTOIN [Concomitant]
     Dosage: 200 MG, UNK
     Route: 048
  15. PLAVIX [Concomitant]
     Dosage: 75 MG, QD
     Route: 048
     Dates: end: 20130524
  16. POTASSIUM [Concomitant]
     Dosage: 10 MEQ, UNK
     Route: 048
  17. DEXAMETHASONE [Concomitant]
     Dosage: 4 MG, UNK
     Route: 048
     Dates: start: 20130411
  18. PRAMIPEXOLE DIHYDROCHLORIDE [Concomitant]
     Dosage: 0.125-1.5 MG, UNK
     Route: 048
  19. RENAGEL                            /01459901/ [Concomitant]
     Dosage: 1600 MG, TID
     Route: 048
  20. SIMVASTATIN [Concomitant]
     Dosage: 20-40 MG, BEDTIME, UNK
     Route: 048
  21. LOMOTIL                            /00034001/ [Concomitant]
     Dosage: 2 MG, UNK
     Route: 048
     Dates: start: 20130516
  22. REVLIMID [Concomitant]
     Dosage: 5 MG, UNK
     Route: 048
     Dates: start: 20130418
  23. ZOFRAN                             /00955301/ [Concomitant]
     Dosage: 4 MG, UNK
     Route: 048
     Dates: start: 20130502
  24. ACETAMINOPHEN [Concomitant]
     Dosage: 325 MG, UNK
     Route: 048
  25. ASPIRIN [Concomitant]
     Dosage: 81 MG, UNK
     Route: 048
  26. BUMETANIDE [Concomitant]
     Dosage: 1 MG, UNK
     Route: 048

REACTIONS (3)
  - Convulsion [Recovered/Resolved]
  - Hypocalcaemia [Recovered/Resolved]
  - Cardiac failure congestive [Recovered/Resolved]
